FAERS Safety Report 8902702 (Version 4)
Quarter: 2013Q3

REPORT INFORMATION
  Report Type: Spontaneous
  Country: ES (occurrence: ES)
  Receive Date: 20121112
  Receipt Date: 20130905
  Transmission Date: 20140515
  Serious: Yes (Other)
  Sender: FDA-Public Use
  Company Number: ES-JNJFOC-20121103028

PATIENT
  Age: 77 Year
  Sex: Male

DRUGS (5)
  1. PALEXIA RETARD [Suspect]
     Indication: SCIATICA
     Route: 048
     Dates: start: 201208
  2. LATANOPROST [Concomitant]
     Indication: GLAUCOMA
     Route: 065
  3. EPROSARTAN MESILATE [Concomitant]
     Indication: HYPERTENSION
     Route: 065
  4. IBUPROFEN [Concomitant]
     Indication: PRODUCT USED FOR UNKNOWN INDICATION
     Route: 065
  5. SIMVASTATIN [Concomitant]
     Indication: HYPERCHOLESTEROLAEMIA
     Route: 065

REACTIONS (1)
  - Gynaecomastia [Not Recovered/Not Resolved]
